FAERS Safety Report 13467376 (Version 2)
Quarter: 2017Q2

REPORT INFORMATION
  Report Type: Spontaneous
  Country: US (occurrence: US)
  Receive Date: 20170421
  Receipt Date: 20170530
  Transmission Date: 20170830
  Serious: No
  Sender: FDA-Public Use
  Company Number: US-ASTRAZENECA-2017SE35799

PATIENT
  Sex: Male
  Weight: 92.5 kg

DRUGS (5)
  1. BYDUREON [Suspect]
     Active Substance: EXENATIDE
     Indication: TYPE 2 DIABETES MELLITUS
     Route: 058
     Dates: start: 201703
  2. LANTUS [Concomitant]
     Active Substance: INSULIN GLARGINE
  3. BYDUREON [Suspect]
     Active Substance: EXENATIDE
     Indication: TYPE 2 DIABETES MELLITUS
     Route: 058
     Dates: start: 2017
  4. INSULIN [Concomitant]
     Active Substance: INSULIN NOS
  5. NOVOLOG [Concomitant]
     Active Substance: INSULIN ASPART

REACTIONS (3)
  - Injection site pain [Unknown]
  - Wrong technique in product usage process [Unknown]
  - Device malfunction [Unknown]
